FAERS Safety Report 19402627 (Version 1)
Quarter: 2021Q2

REPORT INFORMATION
  Report Type: Spontaneous
  Country: FR (occurrence: FR)
  Receive Date: 20210610
  Receipt Date: 20210610
  Transmission Date: 20210717
  Serious: Yes (Other)
  Sender: FDA-Public Use
  Company Number: FR-PFIZER INC-2021625172

PATIENT
  Age: 28 Year
  Sex: Male
  Weight: 63 kg

DRUGS (1)
  1. LYRICA [Suspect]
     Active Substance: PREGABALIN
     Indication: PAIN
     Dosage: 2400 MG, UNSPECIFIED FREQUENCY
     Route: 048
     Dates: start: 202103

REACTIONS (5)
  - Prescription form tampering [Recovered/Resolved]
  - Drug abuse [Recovering/Resolving]
  - High risk sexual behaviour [Not Recovered/Not Resolved]
  - Drug use disorder [Recovering/Resolving]
  - Intentional overdose [Unknown]

NARRATIVE: CASE EVENT DATE: 202103
